FAERS Safety Report 9158604 (Version 3)
Quarter: 2013Q3

REPORT INFORMATION
  Report Type: Spontaneous
  Country: US (occurrence: US)
  Receive Date: 20130312
  Receipt Date: 20130830
  Transmission Date: 20140515
  Serious: Yes (Other)
  Sender: FDA-Public Use
  Company Number: US-AMGEN-USASP2013014518

PATIENT
  Age: 62 Year
  Sex: Female
  Weight: 72.11 kg

DRUGS (5)
  1. PROLIA [Suspect]
     Indication: OSTEOPOROSIS POSTMENOPAUSAL
     Dosage: UNK
     Route: 065
     Dates: start: 20120615
  2. ADVAIR [Concomitant]
  3. OMEPRAZOLE [Concomitant]
  4. VITAMINS                           /00067501/ [Concomitant]
  5. CALCIUM [Concomitant]

REACTIONS (10)
  - Loss of consciousness [Unknown]
  - Ear pain [Not Recovered/Not Resolved]
  - Pain in jaw [Not Recovered/Not Resolved]
  - Cough [Unknown]
  - Nasopharyngitis [Unknown]
  - Discomfort [Unknown]
  - Dizziness [Unknown]
  - Visual impairment [Unknown]
  - Tenderness [Unknown]
  - Pain in extremity [Recovered/Resolved]
